FAERS Safety Report 19285747 (Version 5)
Quarter: 2021Q4

REPORT INFORMATION
  Report Type: Report from Study
  Country: JP (occurrence: JP)
  Receive Date: 20210521
  Receipt Date: 20211210
  Transmission Date: 20220303
  Serious: Yes (Hospitalization)
  Sender: FDA-Public Use
  Company Number: NVSC2021JP113135

PATIENT
  Age: 72 Year
  Sex: Male
  Weight: 62.4 kg

DRUGS (25)
  1. BEOVU [Suspect]
     Active Substance: BROLUCIZUMAB-DBLL
     Indication: Retinal vein occlusion
     Dosage: 6 MG, Q4W
     Route: 031
     Dates: start: 20200303, end: 20210427
  2. DIQUAFOSOL TETRASODIUM [Concomitant]
     Active Substance: DIQUAFOSOL TETRASODIUM
     Indication: Ocular discomfort
     Dosage: UNK
     Route: 065
     Dates: start: 20201111
  3. OPALMON [Concomitant]
     Active Substance: LIMAPROST
     Indication: Spondylolisthesis
     Dosage: UNK
     Route: 065
     Dates: start: 20050101
  4. REBAMIPIDE [Concomitant]
     Active Substance: REBAMIPIDE
     Indication: Prophylaxis
     Dosage: UNK
     Route: 065
     Dates: start: 20210301
  5. PREDNISOLONE [Concomitant]
     Active Substance: PREDNISOLONE
     Indication: Vitritis
     Dosage: UNK
     Route: 065
     Dates: start: 20210519
  6. TRIAMCINOLONE ACETONIDE [Concomitant]
     Active Substance: TRIAMCINOLONE ACETONIDE
     Indication: Vitritis
     Dosage: UNK
     Route: 065
     Dates: start: 20210518, end: 20210518
  7. CEFCAPENE PIVOXIL HYDROCHLORIDE [Concomitant]
     Active Substance: CEFCAPENE PIVOXIL HYDROCHLORIDE
     Indication: Infection prophylaxis
     Dosage: UNK
     Route: 065
     Dates: start: 20210521, end: 20210525
  8. BETAMETHASONE SODIUM PHOSPHATE [Concomitant]
     Active Substance: BETAMETHASONE SODIUM PHOSPHATE
     Indication: Vitritis
     Dosage: UNK
     Route: 065
     Dates: start: 20210518
  9. BETAMETHASONE SODIUM PHOSPHATE [Concomitant]
     Active Substance: BETAMETHASONE SODIUM PHOSPHATE
     Indication: Prophylaxis
     Dosage: UNK
     Route: 065
     Dates: start: 20210521
  10. LEVOFLOXACIN [Concomitant]
     Active Substance: LEVOFLOXACIN
     Indication: Infection prophylaxis
     Dosage: UNK
     Route: 065
     Dates: start: 20210519, end: 20210526
  11. FLUOROMETHOLONE [Concomitant]
     Active Substance: FLUOROMETHOLONE
     Indication: Prophylaxis
     Dosage: UNK
     Route: 065
     Dates: start: 20210518, end: 20210629
  12. KALLIDINOGENASE [Concomitant]
     Active Substance: KALLIDINOGENASE
     Indication: Retinal vein occlusion
     Dosage: 50 UNITS
     Route: 065
     Dates: start: 20200205
  13. RIPASUDIL HYDROCHLORIDE DIHYDRATE [Concomitant]
     Active Substance: RIPASUDIL HYDROCHLORIDE DIHYDRATE
     Indication: Glaucoma
     Dosage: UNK
     Route: 065
     Dates: start: 20210519, end: 20210519
  14. ACETAZOLAMIDE [Concomitant]
     Active Substance: ACETAZOLAMIDE
     Indication: Glaucoma
     Dosage: UNK
     Route: 065
     Dates: start: 20210520, end: 20210520
  15. CALCIUM ASPARTATE [Concomitant]
     Active Substance: CALCIUM ASPARTATE
     Indication: Product used for unknown indication
     Dosage: UNK
     Route: 065
     Dates: start: 20210520, end: 20210520
  16. BROMFENAC NA [Concomitant]
     Indication: Infection prophylaxis
     Dosage: UNK
     Route: 065
     Dates: start: 20210521
  17. CARBAZOCHROME SODIUM SULFONATE [Concomitant]
     Active Substance: CARBAZOCHROME SODIUM SULFONATE
     Indication: Retinal vein occlusion
     Dosage: 30 MG
     Route: 065
     Dates: start: 20200205
  18. SEIROGAN [Concomitant]
     Indication: Prophylaxis against diarrhoea
     Dosage: UNK
     Route: 065
     Dates: start: 19900101
  19. KETOPROFEN [Concomitant]
     Active Substance: KETOPROFEN
     Indication: Spondylolisthesis
     Dosage: 120 MG
     Route: 065
     Dates: start: 20050101
  20. LOXOPROFEN SODIUM [Concomitant]
     Active Substance: LOXOPROFEN SODIUM
     Indication: Spondylolisthesis
     Dosage: 100 MG
     Route: 065
     Dates: start: 20050101
  21. ALPHAGAN P [Concomitant]
     Active Substance: BRIMONIDINE TARTRATE
     Indication: Glaucoma
     Dosage: UNK
     Route: 065
     Dates: start: 20201111
  22. BIMATOPROST [Concomitant]
     Active Substance: BIMATOPROST
     Indication: Glaucoma
     Dosage: UNK
     Route: 065
     Dates: start: 20201111
  23. CELECOXIB [Concomitant]
     Active Substance: CELECOXIB
     Indication: Arthralgia
     Dosage: UNK
     Route: 065
     Dates: start: 20210301
  24. PILOCARPINE [Concomitant]
     Active Substance: PILOCARPINE
     Indication: Glaucoma
     Dosage: UNK
     Route: 065
     Dates: start: 20210521, end: 20210629
  25. LANSOPRAZOLE [Concomitant]
     Active Substance: LANSOPRAZOLE
     Indication: Gastric mucosal calcinosis
     Dosage: UNK
     Route: 065
     Dates: start: 20210519, end: 20210601

REACTIONS (1)
  - Retinal vascular occlusion [Not Recovered/Not Resolved]

NARRATIVE: CASE EVENT DATE: 20210518
